FAERS Safety Report 4303510-0 (Version None)
Quarter: 2004Q1

REPORT INFORMATION
  Report Type: 
  Country: None (occurrence: None)
  Receive Date: 20040224
  Receipt Date: 20040224
  Transmission Date: 20041129
  Serious: Yes (Life-Threatening, Hospitalization, Other)
  Sender: FDA-Public Use
  Company Number: None

PATIENT
  Age: 81 Year
  Sex: Female
  Weight: 55 kg

DRUGS (1)
  1. FLEET PHOSPHOSODA 45 ML FLEET'S [Suspect]
     Indication: COLONOSCOPY
     Dosage: 45 ML ORAL
     Route: 048
     Dates: start: 20030815, end: 20030816

REACTIONS (3)
  - NEPHROCALCINOSIS [None]
  - NEPHROPATHY [None]
  - RENAL FAILURE [None]
